FAERS Safety Report 6683600-8 (Version None)
Quarter: 2010Q2

REPORT INFORMATION
  Report Type: 
  Country: None (occurrence: None)
  Receive Date: 20100413
  Receipt Date: 20100405
  Transmission Date: 20101027
  Serious: Yes (Life-Threatening)
  Sender: FDA-Public Use
  Company Number: 201004AGG00925

PATIENT
  Age: 77 Year
  Sex: Female

DRUGS (4)
  1. TIROFIBAN HYDROCHLORIDE (AGGRASTAT(TIROFIBAN HCL)) [Suspect]
     Dosage: DOSE INTRAVENOUS
     Route: 042
  2. ENOXAPARIN SODIUM [Suspect]
  3. CLOPIDOGREL BISULFATE [Suspect]
  4. ASPIRIN [Concomitant]

REACTIONS (5)
  - COAGULOPATHY [None]
  - HYPOTENSION [None]
  - LEFT VENTRICULAR FAILURE [None]
  - PULMONARY ALVEOLAR HAEMORRHAGE [None]
  - THROMBOSIS IN DEVICE [None]
